FAERS Safety Report 7596646-2 (Version None)
Quarter: 2011Q3

REPORT INFORMATION
  Report Type: 
  Country: None (occurrence: None)
  Receive Date: 20110708
  Receipt Date: 20110628
  Transmission Date: 20111222
  Serious: Yes (Other)
  Sender: FDA-Public Use
  Company Number: US-JNJFOC-20110506547

PATIENT
  Sex: Male
  Weight: 84.82 kg

DRUGS (4)
  1. REMICADE [Suspect]
     Indication: RHEUMATOID ARTHRITIS
     Route: 042
     Dates: start: 20110322
  2. REMICADE [Suspect]
     Route: 042
     Dates: start: 20101130
  3. REMICADE [Suspect]
     Route: 042
     Dates: start: 20110125
  4. REMICADE [Suspect]
     Route: 042
     Dates: start: 20100601

REACTIONS (1)
  - CEREBROVASCULAR ACCIDENT [None]
